FAERS Safety Report 6608282-2 (Version None)
Quarter: 2010Q1

REPORT INFORMATION
  Report Type: 
  Country: None (occurrence: None)
  Receive Date: 20100301
  Receipt Date: 20100218
  Transmission Date: 20100710
  Serious: Yes (Other)
  Sender: FDA-Public Use
  Company Number: BR-GENENTECH-293866

PATIENT
  Sex: Female
  Weight: 63 kg

DRUGS (7)
  1. RITUXIMAB [Suspect]
     Indication: RHEUMATOID ARTHRITIS
     Dosage: 1000 MG/KG, UNK
     Route: 042
     Dates: start: 20060101, end: 20090625
  2. RITUXIMAB [Suspect]
     Indication: VASCULITIS
     Dosage: UNK
     Route: 042
     Dates: start: 20090701
  3. ARAVA [Concomitant]
     Indication: DRUG USE FOR UNKNOWN INDICATION
     Dosage: 500 MG, QD
  4. METHOTREXATE [Concomitant]
     Indication: DRUG USE FOR UNKNOWN INDICATION
  5. INSULIN [Concomitant]
     Indication: DRUG USE FOR UNKNOWN INDICATION
  6. HUMALOG [Concomitant]
     Indication: DRUG USE FOR UNKNOWN INDICATION
  7. ORENCIA [Concomitant]
     Indication: RHEUMATOID ARTHRITIS

REACTIONS (6)
  - ARTHROPATHY [None]
  - BACK PAIN [None]
  - BONE DISORDER [None]
  - GAIT DISTURBANCE [None]
  - PAIN IN EXTREMITY [None]
  - WEIGHT DECREASED [None]
